FAERS Safety Report 24422011 (Version 2)
Quarter: 2025Q1

REPORT INFORMATION
  Report Type: Spontaneous
  Country: US (occurrence: US)
  Receive Date: 20241010
  Receipt Date: 20250117
  Transmission Date: 20250408
  Serious: Yes (Hospitalization)
  Sender: DR REDDYS
  Company Number: US-MLMSERVICE-20240924-PI199165-00327-1

PATIENT

DRUGS (4)
  1. OLANZAPINE [Suspect]
     Active Substance: OLANZAPINE
     Indication: Antipsychotic therapy
     Dosage: 5 MG IN THE MORNING AND 10 MG IN THE EVENING
  2. OLANZAPINE [Suspect]
     Active Substance: OLANZAPINE
     Dosage: 5 MG IN THE MORNING AND 10 MG IN THE EVENING
  3. VALPROIC ACID [Suspect]
     Active Substance: VALPROIC ACID
     Indication: Antipsychotic therapy
     Dosage: 500 MG IN THE MORNING AND 700 MG IN THE EVENING
  4. VALPROIC ACID [Suspect]
     Active Substance: VALPROIC ACID
     Dosage: 500 MG IN THE MORNING AND 700 MG IN THE EVENING

REACTIONS (1)
  - Periorbital oedema [Recovered/Resolved]
